FAERS Safety Report 7214229-0 (Version None)
Quarter: 2011Q1

REPORT INFORMATION
  Report Type: 
  Country: None (occurrence: None)
  Receive Date: 20110107
  Receipt Date: 20101229
  Transmission Date: 20110831
  Serious: Yes (Other)
  Sender: FDA-Public Use
  Company Number: FR-KINGPHARMUSA00001-K201001563

PATIENT
  Sex: Female

DRUGS (1)
  1. CORGARD [Suspect]
     Dosage: UNK

REACTIONS (1)
  - ABORTION SPONTANEOUS [None]
